FAERS Safety Report 7235935-8 (Version None)
Quarter: 2011Q1

REPORT INFORMATION
  Report Type: 
  Country: None (occurrence: None)
  Receive Date: 20110120
  Receipt Date: 20110103
  Transmission Date: 20110831
  Serious: Yes (Hospitalization, Congenital Anomaly)
  Sender: FDA-Public Use
  Company Number: A0841036A

PATIENT
  Sex: Male
  Weight: 2.5 kg

DRUGS (2)
  1. FLINTSTONE VITAMINS [Concomitant]
  2. PAXIL CR [Suspect]
     Indication: DEPRESSION
     Dosage: 12.5MG PER DAY
     Dates: start: 20020506, end: 20020101

REACTIONS (9)
  - PATENT DUCTUS ARTERIOSUS [None]
  - CONGENITAL CARDIOVASCULAR ANOMALY [None]
  - ATRIOVENTRICULAR BLOCK SECOND DEGREE [None]
  - HYPOPLASTIC RIGHT HEART SYNDROME [None]
  - HEART DISEASE CONGENITAL [None]
  - MATERNAL DRUGS AFFECTING FOETUS [None]
  - ATRIAL SEPTAL DEFECT [None]
  - DRUG EXPOSURE DURING PREGNANCY [None]
  - PULMONARY ARTERY STENOSIS CONGENITAL [None]
